FAERS Safety Report 6815507 (Version 10)
Quarter: 2015Q4

REPORT INFORMATION
  Report Type: Spontaneous
  Country: US (occurrence: US)
  Receive Date: 20081119
  Receipt Date: 20151204
  Transmission Date: 20160305
  Serious: Yes (Other)
  Sender: FDA-Public Use
  Company Number: US-ROCHE-581441

PATIENT
  Age: 16 Year
  Sex: Male
  Weight: 72.6 kg

DRUGS (1)
  1. ACCUTANE [Suspect]
     Active Substance: ISOTRETINOIN
     Indication: ACNE
     Route: 065
     Dates: start: 19971125, end: 199803

REACTIONS (12)
  - Colitis ulcerative [Unknown]
  - Anal fistula [Unknown]
  - Suicidal ideation [Unknown]
  - Inflammatory bowel disease [Unknown]
  - Depression [Unknown]
  - Anaemia [Recovered/Resolved]
  - Pilonidal cyst [Recovered/Resolved]
  - Fatigue [Unknown]
  - Crohn^s disease [Unknown]
  - Pain [Unknown]
  - Anal abscess [Unknown]
  - Arthralgia [Unknown]

NARRATIVE: CASE EVENT DATE: 19971229
